FAERS Safety Report 19637990 (Version 1)
Quarter: 2021Q3

REPORT INFORMATION
  Report Type: Spontaneous
  Country: US (occurrence: US)
  Receive Date: 20210730
  Receipt Date: 20210730
  Transmission Date: 20211014
  Serious: No
  Sender: FDA-Public Use
  Company Number: US-VERTEX PHARMACEUTICALS-2021-011352

PATIENT
  Age: 16 Year
  Sex: Female

DRUGS (2)
  1. URSODIOL. [Concomitant]
     Active Substance: URSODIOL
  2. TRIKAFTA [Suspect]
     Active Substance: ELEXACAFTOR\IVACAFTOR\TEZACAFTOR
     Indication: CYSTIC FIBROSIS
     Dosage: UNK
     Route: 048
     Dates: start: 202001

REACTIONS (1)
  - Platelet count decreased [Not Recovered/Not Resolved]
